FAERS Safety Report 13112853 (Version 2)
Quarter: 2017Q1

REPORT INFORMATION
  Report Type: Spontaneous
  Country: AU (occurrence: AU)
  Receive Date: 20170113
  Receipt Date: 20170301
  Transmission Date: 20170428
  Serious: Yes (Other)
  Sender: FDA-Public Use
  Company Number: PHHY2017AU002624

PATIENT
  Sex: Male

DRUGS (2)
  1. SPIRONOLACTONE. [Concomitant]
     Active Substance: SPIRONOLACTONE
     Indication: PRODUCT USED FOR UNKNOWN INDICATION
     Route: 065
  2. ENTRESTO [Suspect]
     Active Substance: SACUBITRIL\VALSARTAN
     Indication: PRODUCT USED FOR UNKNOWN INDICATION
     Dosage: 100 MG (49/51 MG), UNK
     Route: 065
     Dates: start: 20161212, end: 20170101

REACTIONS (10)
  - Spinal pain [Unknown]
  - Lethargy [Unknown]
  - Hypokalaemia [Recovered/Resolved]
  - Muscle fatigue [Recovered/Resolved]
  - Urine output decreased [Unknown]
  - Limb discomfort [Recovered/Resolved]
  - Blood creatine phosphokinase increased [Not Recovered/Not Resolved]
  - Flank pain [Unknown]
  - Renal disorder [Recovered/Resolved]
  - Myalgia [Recovered/Resolved]
